FAERS Safety Report 10137189 (Version 1)
Quarter: 2014Q2

REPORT INFORMATION
  Report Type: Report from Study
  Country: US (occurrence: US)
  Receive Date: 20140429
  Receipt Date: 20140429
  Transmission Date: 20141212
  Serious: No
  Sender: FDA-Public Use
  Company Number: US-ABBVIE-14P-163-1214057-00

PATIENT
  Age: 49 Year
  Sex: Female
  Weight: 60.38 kg

DRUGS (2)
  1. ANDROGEL [Suspect]
     Indication: EXPOSURE VIA PARTNER
  2. DEXILANT [Concomitant]
     Indication: GASTROOESOPHAGEAL REFLUX DISEASE

REACTIONS (2)
  - Exposure via partner [Not Recovered/Not Resolved]
  - Hair growth abnormal [Not Recovered/Not Resolved]
